FAERS Safety Report 6510081-7 (Version None)
Quarter: 2009Q4

REPORT INFORMATION
  Report Type: 
  Country: None (occurrence: None)
  Receive Date: 20091222
  Receipt Date: 20091211
  Transmission Date: 20100525
  Serious: Yes (Other)
  Sender: FDA-Public Use
  Company Number: B0521455A

PATIENT
  Age: 65 Year
  Sex: Female

DRUGS (1)
  1. NICORETTE [Suspect]
     Dosage: 12MG PER DAY
     Route: 048
     Dates: start: 19980101

REACTIONS (3)
  - DEPENDENCE [None]
  - HYPERTONIC BLADDER [None]
  - INCORRECT DRUG ADMINISTRATION DURATION [None]
